FAERS Safety Report 11518454 (Version 1)
Quarter: 2015Q3

REPORT INFORMATION
  Report Type: Spontaneous
  Country: US (occurrence: US)
  Receive Date: 20150917
  Receipt Date: 20150917
  Transmission Date: 20151125
  Serious: Yes (Hospitalization)
  Sender: FDA-Public Use
  Company Number: US-PERRIGO-15US009334

PATIENT
  Age: 54 Year
  Sex: Male
  Weight: 81.63 kg

DRUGS (1)
  1. LORATADINE. [Suspect]
     Active Substance: LORATADINE
     Indication: INTENTIONAL OVERDOSE
     Dosage: 1200 MG, SINGLE
     Route: 048
     Dates: start: 20150908, end: 20150908

REACTIONS (2)
  - Intentional overdose [Unknown]
  - Expired product administered [Unknown]

NARRATIVE: CASE EVENT DATE: 20150908
